FAERS Safety Report 8099748-X (Version None)
Quarter: 2012Q1

REPORT INFORMATION
  Report Type: 
  Country: None (occurrence: None)
  Receive Date: 20120129
  Receipt Date: 20110926
  Transmission Date: 20120608
  Serious: No
  Sender: FDA-Public Use
  Company Number: US-ABBOTT-11P-163-0855391-00

PATIENT
  Sex: Male

DRUGS (3)
  1. HUMIRA [Suspect]
     Indication: RHEUMATOID ARTHRITIS
     Dosage: UNDER THE SKIN EVERY 2 WEEKS
     Route: 050
     Dates: start: 20110823, end: 20110909
  2. HUMIRA [Suspect]
     Dates: start: 20110826
  3. SYNTHROID [Concomitant]
     Indication: PRODUCT USED FOR UNKNOWN INDICATION
     Dates: start: 20040101

REACTIONS (22)
  - HYPERHIDROSIS [None]
  - CHILLS [None]
  - DECREASED APPETITE [None]
  - MALAISE [None]
  - WEIGHT DECREASED [None]
  - PRURITUS [None]
  - FATIGUE [None]
  - PYREXIA [None]
  - PNEUMONIA [None]
  - MYALGIA [None]
  - OROPHARYNGEAL PAIN [None]
  - ASTHENIA [None]
  - VOMITING [None]
  - OEDEMA PERIPHERAL [None]
  - BONE PAIN [None]
  - NAUSEA [None]
  - LIPOATROPHY [None]
  - MUSCLE ATROPHY [None]
  - THROAT IRRITATION [None]
  - FEELING ABNORMAL [None]
  - DYSPHAGIA [None]
  - BACK PAIN [None]
